FAERS Safety Report 8349696-2 (Version None)
Quarter: 2012Q2

REPORT INFORMATION
  Report Type: 
  Country: None (occurrence: None)
  Receive Date: 20120510
  Receipt Date: 20120507
  Transmission Date: 20120825
  Serious: Yes (Death)
  Sender: FDA-Public Use
  Company Number: PHHY2012JP039231

PATIENT
  Age: 41 Year
  Sex: Female

DRUGS (2)
  1. ANABOLIC STEROIDS AND PREPARATIONS [Concomitant]
     Dosage: UNK UKN, UNK
     Route: 048
  2. CYCLOSPORINE [Suspect]
     Dosage: UNK UKN, UNK
     Route: 048

REACTIONS (2)
  - STAPHYLOCOCCAL SEPSIS [None]
  - GASTROINTESTINAL HAEMORRHAGE [None]
